FAERS Safety Report 7584657-2 (Version None)
Quarter: 2011Q2

REPORT INFORMATION
  Report Type: 
  Country: None (occurrence: None)
  Receive Date: 20110630
  Receipt Date: 20110617
  Transmission Date: 20111010
  Serious: Yes (Other)
  Sender: FDA-Public Use
  Company Number: GB-ROCHE-783849

PATIENT
  Age: 66 Year
  Sex: Female
  Weight: 73.8 kg

DRUGS (11)
  1. HERCEPTIN [Suspect]
     Route: 042
     Dates: start: 20110309
  2. DOCETAXEL [Suspect]
     Route: 042
     Dates: start: 20110309, end: 20110309
  3. EPIRUBICIN [Concomitant]
     Indication: BREAST CANCER
     Route: 065
  4. FLUOROURACIL [Concomitant]
     Indication: BREAST CANCER
     Route: 040
  5. CYCLOPHOSPHAMIDE [Concomitant]
     Indication: BREAST CANCER
     Route: 040
  6. FLUCONAZOLE [Concomitant]
  7. HERCEPTIN [Suspect]
     Route: 042
     Dates: start: 20110215
  8. DOCETAXEL [Suspect]
     Indication: BREAST CANCER
     Route: 042
     Dates: start: 20110216, end: 20110216
  9. PEGFILGRASTIM [Concomitant]
     Route: 065
  10. RATIOGRASTIM [Concomitant]
     Indication: PREMEDICATION
  11. DEXAMETHASONE [Concomitant]
     Route: 065

REACTIONS (9)
  - LACRIMATION INCREASED [None]
  - SKIN EXFOLIATION [None]
  - CANDIDIASIS [None]
  - DRUG HYPERSENSITIVITY [None]
  - OEDEMA PERIPHERAL [None]
  - SWELLING FACE [None]
  - RASH [None]
  - MYALGIA [None]
  - NEUTROPENIC SEPSIS [None]
